FAERS Safety Report 8772384 (Version 2)
Quarter: 2012Q4

REPORT INFORMATION
  Report Type: Report from Study
  Country: JP (occurrence: JP)
  Receive Date: 20120906
  Receipt Date: 20121102
  Transmission Date: 20130627
  Serious: Yes (Death)
  Sender: FDA-Public Use
  Company Number: JP-009507513-1209JPN000729

PATIENT
  Age: 57 Year
  Sex: Male

DRUGS (5)
  1. REFLEX [Suspect]
     Indication: DEPRESSION
     Dosage: 15 mg, qd
     Route: 048
     Dates: start: 20120615, end: 20120621
  2. REFLEX [Suspect]
     Dosage: 30 mg, qd
     Route: 048
     Dates: start: 20120622, end: 20120712
  3. REFLEX [Suspect]
     Dosage: 45 mg, qd
     Route: 048
     Dates: start: 20120713, end: 20120813
  4. ROSUVASTATIN CALCIUM [Concomitant]
     Indication: DYSLIPIDAEMIA
     Dosage: 25 mg, qd
     Route: 048
     Dates: end: 20120813
  5. FLUNITRAZEPAM [Concomitant]
     Indication: INSOMNIA
     Dosage: UNK UNK, qd
     Route: 048
     Dates: end: 20120813

REACTIONS (3)
  - Completed suicide [Fatal]
  - Hypersomnia [Recovered/Resolved]
  - Dizziness [Not Recovered/Not Resolved]
